FAERS Safety Report 9487371 (Version 5)
Quarter: 2015Q4

REPORT INFORMATION
  Report Type: Report from Study
  Country: FR (occurrence: FR)
  Receive Date: 20130829
  Receipt Date: 20151029
  Transmission Date: 20160305
  Serious: Yes (Hospitalization)
  Sender: FDA-Public Use
  Company Number: FR-ROCHE-1264740

PATIENT
  Age: 49 Year
  Sex: Female
  Weight: 60.4 kg

DRUGS (6)
  1. VINORELBINE [Suspect]
     Active Substance: VINORELBINE\VINORELBINE TARTRATE
     Dosage: ON DAY 1 AND DAY 8 OF EACH 3 WEEK CYCLE.?DRUG RESTARTED.
     Route: 042
     Dates: start: 20130529
  2. PERTUZUMAB [Suspect]
     Active Substance: PERTUZUMAB
     Indication: HER-2 POSITIVE BREAST CANCER
     Dosage: LOADING DOSE CYCLE 1 ONLY
     Route: 042
     Dates: start: 20121107, end: 20121107
  3. TRASTUZUMAB [Suspect]
     Active Substance: TRASTUZUMAB
     Dosage: MAINTENANCE DOSE?DATE OF LAST DOSE PRIOR TO SAE: 03/MAY/2013
     Route: 042
     Dates: start: 20121128
  4. PERTUZUMAB [Suspect]
     Active Substance: PERTUZUMAB
     Dosage: MAINTENANCE DOSE?DATE OF LAST DOSE PRIOR TO SAE: 03/MAY/2013
     Route: 042
     Dates: start: 20121128
  5. VINORELBINE [Suspect]
     Active Substance: VINORELBINE\VINORELBINE TARTRATE
     Indication: HER-2 POSITIVE BREAST CANCER
     Dosage: DATE OF LAST DOSE PRIOR TO SAE: 03/MAY/2013. DRUG TEMPORARILY INTERRUPTED.
     Route: 042
     Dates: start: 20121107, end: 20130510
  6. TRASTUZUMAB [Suspect]
     Active Substance: TRASTUZUMAB
     Indication: HER-2 POSITIVE BREAST CANCER
     Dosage: LOADING DOSE CYCLE 1 ONLY
     Route: 042
     Dates: start: 20121107, end: 20121107

REACTIONS (1)
  - Malaise [Recovered/Resolved]

NARRATIVE: CASE EVENT DATE: 20130506
